FAERS Safety Report 24418780 (Version 1)
Quarter: 2024Q4

REPORT INFORMATION
  Report Type: Report from Study
  Country: ZA (occurrence: ZA)
  Receive Date: 20241009
  Receipt Date: 20241009
  Transmission Date: 20250115
  Serious: Yes (Other)
  Sender: ABBVIE
  Company Number: ZA-ABBVIE-5948949

PATIENT
  Age: 59 Year
  Sex: Female

DRUGS (1)
  1. BOTOX [Suspect]
     Active Substance: ONABOTULINUMTOXINA
     Indication: Torticollis
     Dosage: TIME INTERVAL: AS NECESSARY: FORM STRENGTH: 100 UNIT
     Route: 065
     Dates: start: 2019, end: 2019

REACTIONS (3)
  - Deep brain stimulation [Unknown]
  - Unevaluable event [Unknown]
  - Pain [Unknown]
